FAERS Safety Report 4785544-5 (Version None)
Quarter: 2005Q3

REPORT INFORMATION
  Report Type: 
  Country: None (occurrence: None)
  Receive Date: 20050929
  Receipt Date: 20050908
  Transmission Date: 20060218
  Serious: Yes (Hospitalization)
  Sender: FDA-Public Use
  Company Number: THYM-10728

PATIENT
  Age: 41 Year
  Sex: Male

DRUGS (1)
  1. THYMOGLOBULIN [Suspect]
     Indication: MYELODYSPLASTIC SYNDROME
     Dates: start: 20050816, end: 20050819

REACTIONS (2)
  - RESPIRATORY DISTRESS [None]
  - SERUM SICKNESS [None]
